FAERS Safety Report 6348114-3 (Version None)
Quarter: 2009Q3

REPORT INFORMATION
  Report Type: 
  Country: None (occurrence: None)
  Receive Date: 20090910
  Receipt Date: 20090903
  Transmission Date: 20100115
  Serious: Yes (Other)
  Sender: FDA-Public Use
  Company Number: FR-AMGEN-UK362883

PATIENT
  Age: 46 Year
  Sex: Female

DRUGS (1)
  1. NEULASTA [Suspect]
     Indication: BREAST CANCER
     Route: 065

REACTIONS (3)
  - BODY TEMPERATURE INCREASED [None]
  - GRANULOCYTES ABNORMAL [None]
  - PRESYNCOPE [None]
